FAERS Safety Report 12316491 (Version 1)
Quarter: 2016Q2

REPORT INFORMATION
  Report Type: Spontaneous
  Country: GB (occurrence: GB)
  Receive Date: 20160429
  Receipt Date: 20160429
  Transmission Date: 20160815
  Serious: Yes (Hospitalization)
  Sender: FDA-Public Use
  Company Number: GB-ROCHE-1749466

PATIENT
  Age: 32 Year
  Sex: Male

DRUGS (11)
  1. AMILORIDE [Concomitant]
     Active Substance: AMILORIDE
     Route: 048
     Dates: start: 20160203, end: 20160210
  2. FUROSEMIDE. [Concomitant]
     Active Substance: FUROSEMIDE
     Route: 048
     Dates: start: 20160203, end: 20160211
  3. ASPIRIN. [Concomitant]
     Active Substance: ASPIRIN
     Route: 048
     Dates: start: 20160120, end: 20160207
  4. VANCOMYCIN [Concomitant]
     Active Substance: VANCOMYCIN
     Route: 042
  5. CEFTRIAXONE. [Suspect]
     Active Substance: CEFTRIAXONE
     Indication: STREPTOCOCCAL ENDOCARDITIS
     Route: 042
     Dates: start: 20160210, end: 20160211
  6. BISOPROLOL [Concomitant]
     Active Substance: BISOPROLOL
     Route: 048
     Dates: start: 20160205, end: 20160210
  7. PARACETAMOL [Concomitant]
     Active Substance: ACETAMINOPHEN
     Indication: PAIN
     Dosage: 6 HOURLY.
     Route: 048
     Dates: start: 20160204
  8. GENTAMYCIN [Concomitant]
     Active Substance: GENTAMICIN
     Route: 042
  9. OMEPRAZOLE. [Concomitant]
     Active Substance: OMEPRAZOLE
     Dosage: TWICE A DAY THEN DECREASED TO ONCE DAILY
     Route: 048
     Dates: start: 20160203, end: 20160212
  10. TINZAPARIN SODIUM [Concomitant]
     Active Substance: TINZAPARIN SODIUM
     Indication: PROPHYLAXIS
     Dosage: 4,500UNITS/0.45ML
     Route: 058
     Dates: start: 20160120
  11. CRYSTAPEN [Suspect]
     Active Substance: PENICILLIN G SODIUM
     Indication: STREPTOCOCCAL ENDOCARDITIS
     Route: 040
     Dates: start: 20160120, end: 20160210

REACTIONS (4)
  - Mouth ulceration [Recovered/Resolved]
  - Retinal exudates [Recovered/Resolved]
  - Rash maculo-papular [Recovered/Resolved]
  - Erythema multiforme [Recovered/Resolved]

NARRATIVE: CASE EVENT DATE: 20160208
